FAERS Safety Report 19101762 (Version 1)
Quarter: 2021Q2

REPORT INFORMATION
  Report Type: Spontaneous
  Country: AU (occurrence: AU)
  Receive Date: 20210407
  Receipt Date: 20210407
  Transmission Date: 20210717
  Serious: Yes (Hospitalization)
  Sender: FDA-Public Use
  Company Number: AU-MYLANLABS-2021M1020914

PATIENT
  Age: 40 Year
  Sex: Male

DRUGS (5)
  1. DEXAMETHASONE. [Suspect]
     Active Substance: DEXAMETHASONE
     Indication: HAEMOPHAGOCYTIC LYMPHOHISTIOCYTOSIS
     Route: 065
  2. CLADRIBINE. [Suspect]
     Active Substance: CLADRIBINE
     Indication: HAIRY CELL LEUKAEMIA
     Route: 065
  3. TOCILIZUMAB. [Suspect]
     Active Substance: TOCILIZUMAB
     Indication: HAEMOPHAGOCYTIC LYMPHOHISTIOCYTOSIS
     Route: 065
  4. ETOPOSIDE. [Suspect]
     Active Substance: ETOPOSIDE
     Indication: HAEMOPHAGOCYTIC LYMPHOHISTIOCYTOSIS
     Route: 065
  5. AMPHOTERICIN B. [Concomitant]
     Active Substance: AMPHOTERICIN B
     Indication: FEBRILE NEUTROPENIA
     Route: 065

REACTIONS (5)
  - Neutropenia [Recovered/Resolved]
  - Skin lesion [Recovered/Resolved]
  - Febrile neutropenia [Recovered/Resolved]
  - Rash [Recovered/Resolved]
  - Fungaemia [Recovered/Resolved]
